FAERS Safety Report 6300809-3 (Version None)
Quarter: 2009Q3

REPORT INFORMATION
  Report Type: 
  Country: None (occurrence: None)
  Receive Date: 20090807
  Receipt Date: 20090728
  Transmission Date: 20100115
  Serious: Yes (Death)
  Sender: FDA-Public Use
  Company Number: JP-BRISTOL-MYERS SQUIBB COMPANY-14727960

PATIENT
  Age: 32 Year
  Sex: Male

DRUGS (3)
  1. ABILIFY [Suspect]
     Indication: SCHIZOPHRENIA
     Route: 048
     Dates: start: 20060101, end: 20090701
  2. GASMOTIN [Concomitant]
  3. PARIET [Concomitant]
     Dosage: FORM-TAB.

REACTIONS (5)
  - FEELING COLD [None]
  - HYPERHIDROSIS [None]
  - HYPERVENTILATION [None]
  - SUDDEN DEATH [None]
  - VOMITING [None]
